FAERS Safety Report 9412593 (Version 1)
Quarter: 2013Q2

REPORT INFORMATION
  Report Type: Spontaneous
  Country: BE (occurrence: None)
  Receive Date: 20130611
  Receipt Date: 20130611
  Transmission Date: 20140414
  Serious: Yes (Hospitalization)
  Sender: FDA-Public Use
  Company Number: 0209590

PATIENT
  Age: 18 Month
  Sex: Male

DRUGS (1)
  1. TACHOSIL [Suspect]
     Indication: HYPOSPADIAS

REACTIONS (1)
  - Urethral fistula [None]
